FAERS Safety Report 8830673 (Version 3)
Quarter: 2013Q2

REPORT INFORMATION
  Report Type: Report from Study
  Country: US (occurrence: US)
  Receive Date: 20121009
  Receipt Date: 20130528
  Transmission Date: 20140414
  Serious: Yes (Hospitalization, Other)
  Sender: FDA-Public Use
  Company Number: PHEH2012US019639

PATIENT
  Sex: Female

DRUGS (3)
  1. EXTAVIA [Suspect]
     Indication: MULTIPLE SCLEROSIS
     Dosage: 0.25 MG, QOD
     Route: 058
     Dates: start: 20120627
  2. EXTAVIA [Suspect]
     Dosage: 0.3 MG, QOD
     Route: 058
  3. ANTIBIOTICS [Concomitant]

REACTIONS (21)
  - Fall [Recovered/Resolved]
  - Herpes zoster [Recovering/Resolving]
  - Dehydration [Recovering/Resolving]
  - Ulcer haemorrhage [Recovering/Resolving]
  - Abasia [Recovering/Resolving]
  - Blood potassium decreased [Recovered/Resolved]
  - Thinking abnormal [Recovering/Resolving]
  - Loss of consciousness [Recovering/Resolving]
  - Head injury [Recovering/Resolving]
  - Functional gastrointestinal disorder [Not Recovered/Not Resolved]
  - Weight decreased [Recovering/Resolving]
  - Multiple sclerosis relapse [Recovering/Resolving]
  - Visual impairment [Recovering/Resolving]
  - Vision blurred [Recovering/Resolving]
  - Hypoaesthesia [Recovering/Resolving]
  - Anaemia [Recovered/Resolved]
  - Vomiting [Recovering/Resolving]
  - Pancreatitis [Not Recovered/Not Resolved]
  - Clostridium difficile infection [Not Recovered/Not Resolved]
  - Memory impairment [Recovering/Resolving]
  - Local swelling [Recovering/Resolving]
